FAERS Safety Report 7183033-4 (Version None)
Quarter: 2010Q4

REPORT INFORMATION
  Report Type: 
  Country: None (occurrence: None)
  Receive Date: 20101222
  Receipt Date: 20101214
  Transmission Date: 20110411
  Serious: No
  Sender: FDA-Public Use
  Company Number: US-PFIZER INC-2010172516

PATIENT
  Sex: Female
  Weight: 48.5 kg

DRUGS (6)
  1. CHANTIX [Suspect]
     Indication: SMOKING CESSATION THERAPY
     Dosage: 1 MG, 2X/DAY
     Route: 048
     Dates: start: 20100318, end: 20100401
  2. ADVAIR [Concomitant]
     Dosage: UNK
  3. MONTELUKAST [Concomitant]
     Dosage: UNK
  4. ALBUTEROL [Concomitant]
     Dosage: UNK
  5. ZOLOFT [Concomitant]
     Indication: DEPRESSION
     Dosage: UNK
  6. OXYGEN [Concomitant]
     Dosage: UNK

REACTIONS (2)
  - SKIN CHAPPED [None]
  - SWELLING [None]
